FAERS Safety Report 16962289 (Version 1)
Quarter: 2019Q4

REPORT INFORMATION
  Report Type: Spontaneous
  Country: US (occurrence: US)
  Receive Date: 20191024
  Receipt Date: 20191024
  Transmission Date: 20200122
  Serious: Yes (Other)
  Sender: FDA-Public Use
  Company Number: None

PATIENT
  Age: 72 Year
  Sex: Female
  Weight: 76.5 kg

DRUGS (3)
  1. REPATHA [Concomitant]
     Active Substance: EVOLOCUMAB
     Dates: start: 20190503, end: 20191006
  2. REPATHA [Suspect]
     Active Substance: EVOLOCUMAB
     Indication: HYPERLIPIDAEMIA
     Dosage: ?          OTHER FREQUENCY:EVERY 14 DAYS;?
     Route: 058
     Dates: start: 20190503, end: 20191006
  3. REPATHA [Suspect]
     Active Substance: EVOLOCUMAB
     Indication: DRUG INTOLERANCE
     Dosage: ?          OTHER FREQUENCY:EVERY 14 DAYS;?
     Route: 058
     Dates: start: 20190503, end: 20191006

REACTIONS (5)
  - Paraesthesia [None]
  - Dyspnoea [None]
  - Chest discomfort [None]
  - Eyelid disorder [None]
  - Drug hypersensitivity [None]

NARRATIVE: CASE EVENT DATE: 20191006
